FAERS Safety Report 22024724 (Version 1)
Quarter: 2023Q1

REPORT INFORMATION
  Report Type: Report from Study
  Country: CA (occurrence: CA)
  Receive Date: 20230223
  Receipt Date: 20230223
  Transmission Date: 20230418
  Serious: Yes (Other)
  Sender: FDA-Public Use
  Company Number: CA-JNJFOC-20230244272

PATIENT
  Sex: Female

DRUGS (1)
  1. REMICADE [Suspect]
     Active Substance: INFLIXIMAB
     Indication: Product used for unknown indication
     Dosage: RECENT DOSE ON 17-FEB-2023
     Route: 042

REACTIONS (3)
  - Lupus-like syndrome [Unknown]
  - Paraesthesia [Unknown]
  - Rash [Unknown]
